FAERS Safety Report 10134889 (Version 2)
Quarter: 2015Q1

REPORT INFORMATION
  Report Type: Other
  Country: None (occurrence: US)
  Receive Date: 20140428
  Receipt Date: 20150224
  Transmission Date: 20150720
  Serious: Yes (Hospitalization, Other)
  Sender: FDA-Public Use
  Company Number: US-GSKPPD-2014GSK037852

PATIENT
  Age: 76 Year
  Sex: Male

DRUGS (8)
  1. DIGOXIN. [Concomitant]
     Active Substance: DIGOXIN
     Route: 048
  2. AVANDIA [Suspect]
     Active Substance: ROSIGLITAZONE MALEATE
     Indication: DIABETES MELLITUS
     Dosage: DATES OF AVANDIA USE COULD NOT BE CONFIRMED IN RECORDS REVIEWED.
     Route: 048
  3. AMIODARONE [Concomitant]
     Active Substance: AMIODARONE
     Route: 048
  4. POTASSIUM [Concomitant]
     Active Substance: POTASSIUM
     Route: 048
  5. ZETIA [Concomitant]
     Active Substance: EZETIMIBE
     Route: 048
  6. ASPIRIN. [Concomitant]
     Active Substance: ASPIRIN
     Route: 048
  7. LASIX [Concomitant]
     Active Substance: FUROSEMIDE
  8. LISINOPRIL. [Concomitant]
     Active Substance: LISINOPRIL
     Route: 048

REACTIONS (1)
  - Arteriosclerosis [Recovered/Resolved]

NARRATIVE: CASE EVENT DATE: 20050901
